FAERS Safety Report 19385211 (Version 1)
Quarter: 2021Q2

REPORT INFORMATION
  Report Type: Spontaneous
  Country: JP (occurrence: JP)
  Receive Date: 20210607
  Receipt Date: 20210607
  Transmission Date: 20210717
  Serious: Yes (Hospitalization)
  Sender: FDA-Public Use
  Company Number: JP-FERRINGPH-2021FE03197

PATIENT
  Age: 35 Year

DRUGS (2)
  1. CLOMID [Concomitant]
     Active Substance: CLOMIPHENE CITRATE
     Indication: INFERTILITY
     Route: 065
  2. HMG FERRING [Suspect]
     Active Substance: MENOTROPINS
     Indication: INFERTILITY
     Route: 065

REACTIONS (2)
  - Bowel movement irregularity [Unknown]
  - Haemorrhoids [Unknown]

NARRATIVE: CASE EVENT DATE: 202102
